FAERS Safety Report 10224653 (Version 2)
Quarter: 2014Q2

REPORT INFORMATION
  Report Type: Spontaneous
  Country: FR (occurrence: FR)
  Receive Date: 20140609
  Receipt Date: 20140609
  Transmission Date: 20141212
  Serious: Yes (Disabling)
  Sender: FDA-Public Use
  Company Number: FR-009507513-1404FRA014884

PATIENT
  Sex: Male

DRUGS (3)
  1. EMEND [Suspect]
     Indication: CHEMOTHERAPY
     Dosage: UNK
     Route: 048
  2. EMEND [Suspect]
     Dosage: UNK
     Dates: start: 20140429
  3. THERAPEUTIC RADIOPHARMACEUTICAL (UNSPECIFIED) [Suspect]
     Indication: OROPHARYNGEAL CANCER

REACTIONS (3)
  - Pharyngeal inflammation [Not Recovered/Not Resolved]
  - Wrong technique in drug usage process [Unknown]
  - Off label use [Unknown]
